FAERS Safety Report 4967121-6 (Version None)
Quarter: 2006Q2

REPORT INFORMATION
  Report Type: 
  Country: None (occurrence: None)
  Receive Date: 20060403
  Receipt Date: 20060208
  Transmission Date: 20061013
  Serious: Yes (Hospitalization, Other)
  Sender: FDA-Public Use
  Company Number: 2005163001

PATIENT
  Sex: Female

DRUGS (5)
  1. BEXTRA [Suspect]
     Indication: ILL-DEFINED DISORDER
     Dosage: ORAL
     Route: 048
  2. PLAQUENIL (HYDROXYCHLORQUINE PHOSPHATE) [Concomitant]
  3. ARAVA [Concomitant]
  4. SULFASALAZINE [Concomitant]
  5. VIOXX [Concomitant]

REACTIONS (4)
  - DERMATITIS ALLERGIC [None]
  - PHOTOSENSITIVITY REACTION [None]
  - RASH PRURITIC [None]
  - STEVENS-JOHNSON SYNDROME [None]
